FAERS Safety Report 13663930 (Version 1)
Quarter: 2017Q2

REPORT INFORMATION
  Report Type: Spontaneous
  Country: US (occurrence: US)
  Receive Date: 20170618
  Receipt Date: 20170618
  Transmission Date: 20170830
  Serious: Yes (Other)
  Sender: FDA-Public Use
  Company Number: None

PATIENT
  Age: 32 Year
  Sex: Female
  Weight: 52.65 kg

DRUGS (6)
  1. B5 [Concomitant]
  2. MAGNESIUM [Concomitant]
     Active Substance: MAGNESIUM
  3. BIOTIN [Concomitant]
     Active Substance: BIOTIN
  4. ZINC. [Concomitant]
     Active Substance: ZINC
  5. SELENIUM [Concomitant]
     Active Substance: SELENIUM
  6. FLONASE [Suspect]
     Active Substance: FLUTICASONE PROPIONATE
     Indication: UPPER-AIRWAY COUGH SYNDROME
     Dosage: ?          QUANTITY:2 SPRAY(S);?TWICE A DAY RESPIRATORY (INHALATION)
     Route: 055
     Dates: start: 20160501, end: 20170615

REACTIONS (7)
  - Chest pain [None]
  - Panic attack [None]
  - Headache [None]
  - Palpitations [None]
  - Anxiety [None]
  - Ocular discomfort [None]
  - Paraesthesia [None]

NARRATIVE: CASE EVENT DATE: 20160501
